FAERS Safety Report 12325105 (Version 2)
Quarter: 2016Q2

REPORT INFORMATION
  Report Type: Spontaneous
  Country: FR (occurrence: FR)
  Receive Date: 20160502
  Receipt Date: 20160502
  Transmission Date: 20160815
  Serious: Yes (Death, Life-Threatening, Hospitalization, Other)
  Sender: FDA-Public Use
  Company Number: PHHY2016FR057683

PATIENT
  Age: 65 Year
  Sex: Male

DRUGS (9)
  1. CICLOSPORIN [Suspect]
     Active Substance: CYCLOSPORINE
     Indication: STEM CELL TRANSPLANT
     Dosage: 300 MG, QD
     Route: 065
     Dates: start: 20140901
  2. MYCOPHENOLATE MOFETIL. [Suspect]
     Active Substance: MYCOPHENOLATE MOFETIL
     Indication: IMMUNOSUPPRESSANT DRUG THERAPY
  3. FLUCONAZOLE. [Concomitant]
     Active Substance: FLUCONAZOLE
     Indication: PROPHYLAXIS
     Route: 065
  4. PREDNISONE. [Concomitant]
     Active Substance: PREDNISONE
     Indication: RASH
     Dosage: 1 MG/KG, QD
     Route: 065
  5. CICLOSPORIN [Suspect]
     Active Substance: CYCLOSPORINE
     Indication: IMMUNOSUPPRESSANT DRUG THERAPY
     Dosage: 210 MG, BID
     Route: 065
  6. MYCOPHENOLATE MOFETIL. [Suspect]
     Active Substance: MYCOPHENOLATE MOFETIL
     Indication: STEM CELL TRANSPLANT
     Dosage: 1 G, BID
     Route: 065
  7. ACICLOVIR [Concomitant]
     Active Substance: ACYCLOVIR
     Indication: PROPHYLAXIS
     Route: 065
  8. PIPERACILLIN [Concomitant]
     Active Substance: PIPERACILLIN
     Indication: PYREXIA
     Route: 065
  9. GANCICLOVIR. [Concomitant]
     Active Substance: GANCICLOVIR
     Indication: ANTIVIRAL TREATMENT
     Dosage: 10 MG/KG, QD
     Route: 065

REACTIONS (11)
  - Metabolic acidosis [Unknown]
  - Graft versus host disease in gastrointestinal tract [Unknown]
  - Graft versus host disease [Unknown]
  - Escherichia infection [Unknown]
  - Human herpesvirus 6 infection [Recovered/Resolved]
  - Cerebral toxoplasmosis [Recovered/Resolved]
  - Pyrexia [Recovered/Resolved]
  - Multiple organ dysfunction syndrome [Fatal]
  - Hyperkalaemia [Unknown]
  - Diarrhoea [Unknown]
  - Headache [Recovering/Resolving]
